FAERS Safety Report 4694395-1 (Version None)
Quarter: 2005Q2

REPORT INFORMATION
  Report Type: 
  Country: None (occurrence: None)
  Receive Date: 20050620
  Receipt Date: 20050223
  Transmission Date: 20051028
  Serious: Yes (Other)
  Sender: FDA-Public Use
  Company Number: US-AMGEN-KDL124465

PATIENT
  Sex: Female

DRUGS (12)
  1. ENBREL [Suspect]
     Indication: PSORIATIC ARTHROPATHY
     Route: 058
     Dates: start: 20021210, end: 20040923
  2. ENBREL [Suspect]
     Route: 058
     Dates: start: 20050218
  3. UNSPECIFIED MEDICATION [Concomitant]
     Route: 048
     Dates: start: 20010727
  4. MSM [Concomitant]
     Dates: start: 20010627
  5. GLUCOSAMINE [Concomitant]
     Dates: start: 20010627
  6. MULTI-VITAMINS [Concomitant]
     Dates: start: 20020101
  7. BIESTROGEN [Concomitant]
     Dates: start: 20020423
  8. PROGESTERONE [Concomitant]
     Dates: start: 20020423
  9. NARATRIPTAN [Concomitant]
     Dates: start: 20040920
  10. RELIV [Concomitant]
     Route: 048
     Dates: start: 20040810
  11. NEURONTIN [Concomitant]
     Dates: start: 20040915, end: 20040923
  12. LEXAPRO [Concomitant]
     Dates: start: 20040915, end: 20050120

REACTIONS (11)
  - ABDOMINAL PAIN UPPER [None]
  - BRONCHOSPASM [None]
  - DIARRHOEA [None]
  - DYSPNOEA [None]
  - HEADACHE [None]
  - INJECTION SITE RASH [None]
  - INJECTION SITE REACTION [None]
  - NAUSEA [None]
  - NERVOUSNESS [None]
  - PARAESTHESIA [None]
  - WHEEZING [None]
